FAERS Safety Report 14497923 (Version 2)
Quarter: 2018Q1

REPORT INFORMATION
  Report Type: Spontaneous
  Country: JP (occurrence: JP)
  Receive Date: 20180207
  Receipt Date: 20180316
  Transmission Date: 20180509
  Serious: Yes (Other)
  Sender: FDA-Public Use
  Company Number: JP-PFIZER INC-2018047984

PATIENT
  Age: 78 Year
  Sex: Male

DRUGS (10)
  1. FEBURIC [Concomitant]
     Active Substance: FEBUXOSTAT
     Dosage: UNK UNK, 1X/DAY
  2. MICARDIS [Concomitant]
     Active Substance: TELMISARTAN
     Dosage: UNK UNK, 1X/DAY
  3. REBAMIPIDE [Concomitant]
     Active Substance: REBAMIPIDE
     Dosage: UNK UNK, 2X/DAY
  4. SOLANAX [Suspect]
     Active Substance: ALPRAZOLAM
     Dosage: 0.4 MG, 3X/DAY
     Route: 048
  5. GASCON [Concomitant]
     Active Substance: DIMETHICONE
     Dosage: UNK UNK, 3X/DAY
  6. PARIET [Concomitant]
     Active Substance: RABEPRAZOLE SODIUM
     Dosage: UNK UNK, 1X/DAY
  7. AMLODIPINE [Concomitant]
     Active Substance: AMLODIPINE BESYLATE
     Dosage: UNK UNK, 2X/DAY
  8. BIOFERMIN /01617201/ [Concomitant]
     Active Substance: BACILLUS SUBTILIS\LACTOBACILLUS ACIDOPHILUS\STREPTOCOCCUS FAECAIS
     Dosage: UNK UNK, 3X/DAY
  9. LENDORMIN [Concomitant]
     Active Substance: BROTIZOLAM
     Dosage: UNK, 1X/DAY
     Route: 048
  10. SOLANAX [Suspect]
     Active Substance: ALPRAZOLAM
     Dosage: 0.4 MG, 2X/DAY
     Route: 048

REACTIONS (3)
  - Hallucination [Recovered/Resolved]
  - Bradycardia [Recovered/Resolved]
  - Nodal rhythm [Unknown]

NARRATIVE: CASE EVENT DATE: 201712
